FAERS Safety Report 13272947 (Version 1)
Quarter: 2017Q1

REPORT INFORMATION
  Report Type: Spontaneous
  Country: IT (occurrence: IT)
  Receive Date: 20170227
  Receipt Date: 20170227
  Transmission Date: 20170428
  Serious: Yes (Other)
  Sender: FDA-Public Use
  Company Number: PHHY2017IT024730

PATIENT
  Age: 82 Year
  Sex: Male

DRUGS (1)
  1. ALLOPURINOL. [Suspect]
     Active Substance: ALLOPURINOL
     Indication: HYPERURICAEMIA
     Route: 065
     Dates: start: 20161219, end: 20170102

REACTIONS (3)
  - Pruritus generalised [Unknown]
  - Erythema [Unknown]
  - Chills [Unknown]

NARRATIVE: CASE EVENT DATE: 20161219
